FAERS Safety Report 5520198-1 (Version None)
Quarter: 2007Q4

REPORT INFORMATION
  Report Type: 
  Country: None (occurrence: None)
  Receive Date: 20071116
  Receipt Date: 20071108
  Transmission Date: 20080405
  Serious: Yes (Hospitalization)
  Sender: FDA-Public Use
  Company Number: BE-ABBOTT-07P-013-0424053-00

PATIENT
  Sex: Female

DRUGS (11)
  1. HUMIRA [Suspect]
     Indication: RHEUMATOID ARTHRITIS
     Route: 058
     Dates: start: 20050301
  2. CIPRALAN [Concomitant]
     Indication: DRUG USE FOR UNKNOWN INDICATION
  3. NEBIVOLOL [Concomitant]
     Indication: DRUG USE FOR UNKNOWN INDICATION
  4. LEFLUNOMIDE [Concomitant]
     Indication: RHEUMATOID ARTHRITIS
  5. PREDNISONE TAB [Concomitant]
     Indication: DRUG USE FOR UNKNOWN INDICATION
  6. ACETYLCYSTEINE [Concomitant]
     Indication: DRUG USE FOR UNKNOWN INDICATION
  7. DIGOXIN [Concomitant]
     Indication: DRUG USE FOR UNKNOWN INDICATION
  8. ALDACTAZIDE [Concomitant]
     Indication: DRUG USE FOR UNKNOWN INDICATION
  9. DIGITALIS PURPUREA [Concomitant]
     Indication: ATRIAL FIBRILLATION
  10. FLECAINIDE ACETATE [Concomitant]
     Indication: ATRIAL FIBRILLATION
  11. DIGOXIN [Concomitant]

REACTIONS (22)
  - ADDISON'S DISEASE [None]
  - ASTHENIA [None]
  - ATRIAL FLUTTER [None]
  - BLOOD POTASSIUM DECREASED [None]
  - COAGULATION TIME ABNORMAL [None]
  - COUGH [None]
  - DIPLOPIA [None]
  - DYSPNOEA [None]
  - FLUID INTAKE REDUCED [None]
  - HYPOALBUMINAEMIA [None]
  - HYPOGLYCAEMIA [None]
  - INFECTION [None]
  - INTERNATIONAL NORMALISED RATIO ABNORMAL [None]
  - OEDEMA [None]
  - OESOPHAGITIS [None]
  - ORAL INTAKE REDUCED [None]
  - PHARYNGOLARYNGEAL PAIN [None]
  - PROTEINURIA [None]
  - RENAL FAILURE [None]
  - RESPIRATORY TRACT INFECTION [None]
  - THERAPEUTIC AGENT TOXICITY [None]
  - TYPE 2 DIABETES MELLITUS [None]
